FAERS Safety Report 9061231 (Version 3)
Quarter: 2013Q2

REPORT INFORMATION
  Report Type: Report from Study
  Country: NL (occurrence: NL)
  Receive Date: 20130204
  Receipt Date: 20130410
  Transmission Date: 20140414
  Serious: Yes (Death, Other)
  Sender: FDA-Public Use
  Company Number: NL-GENZYME-CLOF-1002501

PATIENT
  Age: 65 Year
  Sex: Male
  Weight: 77 kg

DRUGS (6)
  1. EVOLTRA [Suspect]
     Indication: ACUTE MYELOID LEUKAEMIA
     Dosage: 19 MG, QD
     Route: 042
     Dates: start: 20121222, end: 20121226
  2. CYTARABINE [Suspect]
     Indication: ACUTE MYELOID LEUKAEMIA
     Dosage: 1900 MG, UNK
     Route: 042
     Dates: start: 20121222
  3. AMSACRINE [Suspect]
     Indication: ACUTE MYELOID LEUKAEMIA
     Dosage: 230 MG, UNK
     Route: 042
     Dates: start: 20121225
  4. LORAZEPAM [Concomitant]
     Indication: PROPHYLAXIS
     Dosage: 0.6 MG, UNK
     Route: 048
     Dates: start: 20121231
  5. IMIPENEM [Concomitant]
     Indication: PROPHYLAXIS
     Dosage: 500 MG, UNK
     Route: 042
     Dates: start: 20121231
  6. INSULIN [Concomitant]
     Indication: TYPE 2 DIABETES MELLITUS
     Dosage: UNK (VARIOUS)
     Route: 058
     Dates: start: 20130101

REACTIONS (9)
  - Staphylococcal sepsis [Fatal]
  - Meningitis staphylococcal [Fatal]
  - Neutropenia [Fatal]
  - Delirium [Fatal]
  - Hypernatraemia [Fatal]
  - Hyperglycaemia [Recovered/Resolved]
  - Respiratory failure [Fatal]
  - Mucosal inflammation [Fatal]
  - Diarrhoea [Fatal]
